FAERS Safety Report 8612056-0 (Version None)
Quarter: 2012Q3

REPORT INFORMATION
  Report Type: 
  Country: None (occurrence: None)
  Receive Date: 20120822
  Receipt Date: 20120808
  Transmission Date: 20120928
  Serious: Yes (Hospitalization, Other)
  Sender: FDA-Public Use
  Company Number: JP-VERTEX PHARMACEUTICAL INC.-2012-019683

PATIENT
  Age: 71 Year
  Sex: Female

DRUGS (23)
  1. MERISLON [Concomitant]
     Indication: PRODUCT USED FOR UNKNOWN INDICATION
     Dosage: 18 MG, QD
     Route: 048
  2. MUCOSOLVAN [Concomitant]
     Indication: PRODUCT USED FOR UNKNOWN INDICATION
     Dosage: 45 MG, QD
     Route: 048
  3. VX-950 [Suspect]
     Dosage: 1500 MG, QD
     Route: 048
     Dates: start: 20120724, end: 20120730
  4. CEPHADOL [Concomitant]
     Indication: PRODUCT USED FOR UNKNOWN INDICATION
     Dosage: 75 MG, QD
     Route: 048
  5. PANCREAZE [Concomitant]
     Indication: PRODUCT USED FOR UNKNOWN INDICATION
     Dosage: 3 DF, QD
     Route: 048
  6. NITRAZEPAM [Concomitant]
     Indication: PRODUCT USED FOR UNKNOWN INDICATION
     Dosage: 10 MG, QD
     Route: 048
     Dates: end: 20120520
  7. MUCOSTA [Concomitant]
     Indication: PRODUCT USED FOR UNKNOWN INDICATION
     Dosage: 100 MG, QD
     Route: 048
     Dates: start: 20120508, end: 20120604
  8. VX-950 [Suspect]
     Dosage: 1500 MG, QD
     Route: 048
     Dates: start: 20120703, end: 20120716
  9. PURSENNID                          /00142207/ [Concomitant]
     Indication: PRODUCT USED FOR UNKNOWN INDICATION
     Dosage: 24 MG, QD
     Route: 048
  10. PEGINTERFERON ALFA-2B [Concomitant]
     Indication: HEPATITIS C
     Dosage: 1.5 A?G/KG, UNK
     Route: 058
     Dates: start: 20120508, end: 20120730
  11. VX-950 [Suspect]
     Dosage: 500 MG, QD
     Route: 048
     Dates: start: 20120626, end: 20120702
  12. RIBAVIRIN [Concomitant]
     Dosage: 200 MG, QD
     Route: 048
     Dates: start: 20120529, end: 20120730
  13. KARY UNI                           /00528801/ [Concomitant]
     Indication: PRODUCT USED FOR UNKNOWN INDICATION
     Dosage: UNK, QD
     Route: 047
  14. RIBAVIRIN [Concomitant]
     Indication: HEPATITIS C
     Dosage: 400 MG, QD
     Route: 048
     Dates: start: 20120508, end: 20120528
  15. LOXOPROFEN [Concomitant]
     Indication: PRODUCT USED FOR UNKNOWN INDICATION
     Dosage: 60 MG, QD
     Route: 048
     Dates: start: 20120508, end: 20120604
  16. VX-950 [Suspect]
     Dosage: 1000 MG, QD
     Route: 048
     Dates: start: 20120519
  17. VX-950 [Suspect]
     Dosage: 1000 MG, QD
     Route: 048
     Dates: start: 20120718, end: 20120723
  18. VX-950 [Suspect]
     Dosage: UNK
  19. NITRAZEPAM [Concomitant]
     Dosage: 5 MG, QD
     Route: 048
     Dates: start: 20120521
  20. LOXOPROFEN [Concomitant]
     Dosage: 120 MG, QD
     Route: 048
     Dates: start: 20120605
  21. VX-950 [Suspect]
     Indication: HEPATITIS C
     Dosage: 1500 MG, QD
     Route: 048
     Dates: start: 20120508, end: 20120518
  22. VX-950 [Suspect]
     Dosage: 1250 MG, QD
     Route: 048
     Dates: start: 20120717, end: 20120717
  23. MUCOSTA [Concomitant]
     Dosage: 200 MG, QD
     Route: 048
     Dates: start: 20120605

REACTIONS (2)
  - BLOOD PRESSURE DECREASED [None]
  - SUBCUTANEOUS ABSCESS [None]
